FAERS Safety Report 7552358-2 (Version None)
Quarter: 2011Q2

REPORT INFORMATION
  Report Type: 
  Country: None (occurrence: None)
  Receive Date: 20110616
  Receipt Date: 20080527
  Transmission Date: 20111010
  Serious: Yes (Other)
  Sender: FDA-Public Use
  Company Number: PHHY2008PL08818

PATIENT
  Sex: Female
  Weight: 70 kg

DRUGS (1)
  1. FEMARA [Suspect]
     Indication: BREAST CANCER
     Dosage: 1 DF, QD
     Route: 048
     Dates: start: 20070820

REACTIONS (5)
  - PAIN IN EXTREMITY [None]
  - GENERALISED ERYTHEMA [None]
  - PYREXIA [None]
  - OEDEMA [None]
  - SKIN WARM [None]
